FAERS Safety Report 9798824 (Version 1)
Quarter: 2014Q1

REPORT INFORMATION
  Report Type: Spontaneous
  Country: US (occurrence: None)
  Receive Date: 20140103
  Receipt Date: 20140103
  Transmission Date: 20141002
  Serious: Yes (Other)
  Sender: FDA-Public Use
  Company Number: None

PATIENT
  Age: 41 Year
  Sex: Female
  Weight: 55.79 kg

DRUGS (2)
  1. ESCITALOPRAM OXALATE [Suspect]
     Indication: ANXIETY
     Route: 048
     Dates: start: 201211, end: 201304
  2. ESCITALOPRAM OXALATE [Suspect]
     Indication: DEPRESSION
     Route: 048
     Dates: start: 201211, end: 201304

REACTIONS (8)
  - Depression [None]
  - Anxiety [None]
  - Rash [None]
  - Arthralgia [None]
  - Disturbance in attention [None]
  - Memory impairment [None]
  - Sexual dysfunction [None]
  - Suicidal ideation [None]
